FAERS Safety Report 23782345 (Version 1)
Quarter: 2024Q2

REPORT INFORMATION
  Report Type: Spontaneous
  Country: IT (occurrence: IT)
  Receive Date: 20240425
  Receipt Date: 20240425
  Transmission Date: 20240715
  Serious: Yes (Hospitalization)
  Sender: FDA-Public Use
  Company Number: None

PATIENT
  Age: 80 Year
  Sex: Male

DRUGS (1)
  1. DAPTOMYCIN [Suspect]
     Active Substance: DAPTOMYCIN
     Indication: Endocarditis staphylococcal
     Dosage: 700 MG /DAY, START DATE: 02-MAR-2024
     Route: 042
     Dates: end: 20240402

REACTIONS (1)
  - Eosinophilic pneumonia acute [Unknown]

NARRATIVE: CASE EVENT DATE: 20240301
